FAERS Safety Report 7963047-4 (Version None)
Quarter: 2011Q4

REPORT INFORMATION
  Report Type: 
  Country: None (occurrence: None)
  Receive Date: 20111207
  Receipt Date: 20111129
  Transmission Date: 20120403
  Serious: Yes (Other)
  Sender: FDA-Public Use
  Company Number: US-ASTRAZENECA-2011SE66253

PATIENT
  Age: 49 Year
  Sex: Female
  Weight: 72.6 kg

DRUGS (1)
  1. NEXIUM [Suspect]
     Indication: GASTROOESOPHAGEAL REFLUX DISEASE
     Route: 048
     Dates: start: 20101101

REACTIONS (4)
  - PHARYNGITIS [None]
  - LUNG NEOPLASM [None]
  - LOWER RESPIRATORY TRACT INFECTION [None]
  - LOCALISED INFECTION [None]
